FAERS Safety Report 17808650 (Version 2)
Quarter: 2020Q2

REPORT INFORMATION
  Report Type: Spontaneous
  Country: US (occurrence: US)
  Receive Date: 20200520
  Receipt Date: 20200520
  Transmission Date: 20200714
  Serious: Yes (Hospitalization, Other)
  Sender: FDA-Public Use
  Company Number: US-JAZZ-2020-US-003507

PATIENT
  Age: 40 Year
  Sex: Female

DRUGS (1)
  1. XYREM [Suspect]
     Active Substance: SODIUM OXYBATE
     Indication: PRODUCT USED FOR UNKNOWN INDICATION
     Dosage: 4.5 GRAM 2 DOSES (DOUBLE DOSE)
     Route: 048

REACTIONS (5)
  - Depressed level of consciousness [Recovered/Resolved]
  - Heart rate decreased [Unknown]
  - Body temperature decreased [Unknown]
  - Agitation [Recovered/Resolved]
  - Extra dose administered [Unknown]

NARRATIVE: CASE EVENT DATE: 202002
